FAERS Safety Report 17742748 (Version 1)
Quarter: 2020Q2

REPORT INFORMATION
  Report Type: Spontaneous
  Country: US (occurrence: US)
  Receive Date: 20200505
  Receipt Date: 20200505
  Transmission Date: 20200714
  Serious: No
  Sender: FDA-Public Use
  Company Number: US-DRREDDYS-USA/USA/20/0122529

PATIENT
  Age: 52 Year
  Sex: Male

DRUGS (1)
  1. ZENATANE [Suspect]
     Active Substance: ISOTRETINOIN
     Indication: PRODUCT USED FOR UNKNOWN INDICATION
     Dosage: RMA ISSUE DATE: 24 FEBRUARY 2020 AND 30 MARCH 2020
     Route: 048
     Dates: end: 202004

REACTIONS (2)
  - Dry skin [Unknown]
  - Chapped lips [Unknown]
